FAERS Safety Report 17014085 (Version 1)
Quarter: 2019Q4

REPORT INFORMATION
  Report Type: Other
  Country: GB (occurrence: GB)
  Receive Date: 20191111
  Receipt Date: 20191111
  Transmission Date: 20200122
  Serious: Yes (Other)
  Sender: FDA-Public Use
  Company Number: GB-EMCURE PHARMACEUTICALS LTD-2019-EPL-1024

PATIENT
  Age: 28 Year
  Sex: Female
  Weight: 92 kg

DRUGS (6)
  1. HYDROMOL                           /06335901/ [Concomitant]
     Active Substance: PARAFFIN\WAX, EMULSIFYING
     Dosage: USE AS DIRECTED
     Dates: start: 20170207
  2. CITALOPRAM [Concomitant]
     Active Substance: CITALOPRAM HYDROBROMIDE
     Dosage: 1 DOSAGE FORM, DAILY
     Dates: start: 20170207, end: 20170912
  3. SUMATRIPTAN. [Concomitant]
     Active Substance: SUMATRIPTAN
     Indication: MIGRAINE
     Dosage: 1 DOSAGE FORM, AS NECESSARY
     Dates: start: 20151111
  4. FERROUS FUMARATE [Concomitant]
     Active Substance: FERROUS FUMARATE
     Dosage: 2 DOSAGE FORM, DAILY
     Dates: start: 20170221
  5. RIZATRIPTAN. [Concomitant]
     Active Substance: RIZATRIPTAN
     Dosage: 1 DOSAGE FORM, AS DIRECTED
     Dates: start: 20170606
  6. FLUOXETINE [Suspect]
     Active Substance: FLUOXETINE HYDROCHLORIDE
     Indication: PRODUCT USED FOR UNKNOWN INDICATION
     Dosage: UNK
     Dates: start: 20170912

REACTIONS (1)
  - Alopecia [Unknown]

NARRATIVE: CASE EVENT DATE: 20171031
